FAERS Safety Report 6942341-X (Version None)
Quarter: 2010Q3

REPORT INFORMATION
  Report Type: 
  Country: None (occurrence: None)
  Receive Date: 20100826
  Receipt Date: 20100818
  Transmission Date: 20110219
  Serious: Yes (Other)
  Sender: FDA-Public Use
  Company Number: CA-JNJFOC-20100806749

PATIENT
  Sex: Female

DRUGS (15)
  1. REMICADE [Suspect]
     Indication: RHEUMATOID ARTHRITIS
     Route: 042
  2. REMICADE [Suspect]
     Route: 042
  3. REMICADE [Suspect]
     Dosage: 9TH INFUSION
     Route: 042
  4. REMICADE [Suspect]
     Route: 042
  5. REMICADE [Suspect]
     Route: 042
  6. REMICADE [Suspect]
     Route: 042
  7. ZOLEDRONIC [Concomitant]
     Route: 042
  8. METHOTREXATE [Concomitant]
     Route: 058
  9. MINOCYCLINE HCL [Concomitant]
  10. ESTRACE [Concomitant]
  11. SYNTHROID [Concomitant]
  12. FOLIC ACID [Concomitant]
  13. MERIDIA [Concomitant]
  14. ATECARD [Concomitant]
  15. ATIVAN [Concomitant]

REACTIONS (4)
  - DEPRESSION [None]
  - PAIN [None]
  - PSORIASIS [None]
  - RHEUMATOID ARTHRITIS [None]
